FAERS Safety Report 13354666 (Version 1)
Quarter: 2017Q1

REPORT INFORMATION
  Report Type: Spontaneous
  Country: None (occurrence: US)
  Receive Date: 20170320
  Receipt Date: 20170320
  Transmission Date: 20170429
  Serious: Yes (Hospitalization)
  Sender: FDA-Public Use
  Company Number: None

PATIENT
  Age: 79 Year
  Sex: Female

DRUGS (2)
  1. IBRANCE [Suspect]
     Active Substance: PALBOCICLIB
     Indication: BREAST CANCER FEMALE
     Dosage: 100MG 1XDAILY 21 DAYS 1 WEEK OFF BY MOUTH
     Route: 048
     Dates: start: 20161206, end: 20170311
  2. LETROZOLE. [Concomitant]
     Active Substance: LETROZOLE

REACTIONS (2)
  - Pneumonia [None]
  - Asthenia [None]

NARRATIVE: CASE EVENT DATE: 20170312
